FAERS Safety Report 4305192-0 (Version None)
Quarter: 2004Q1

REPORT INFORMATION
  Report Type: 
  Country: None (occurrence: None)
  Receive Date: 20040226
  Receipt Date: 20040204
  Transmission Date: 20041129
  Serious: Yes (Hospitalization)
  Sender: FDA-Public Use
  Company Number: JP-GLAXOSMITHKLINE-B0322365A

PATIENT
  Age: 74 Year
  Sex: Female

DRUGS (5)
  1. VENTOLIN [Suspect]
     Indication: ASTHMA
     Dosage: .3ML PER DAY
     Route: 055
     Dates: start: 20040127, end: 20040127
  2. NATEGLINIDE [Concomitant]
     Indication: DIABETES MELLITUS
     Dosage: 60MG THREE TIMES PER DAY
     Route: 048
     Dates: start: 20010219
  3. BEZATOL SR [Concomitant]
     Indication: HYPERLIPIDAEMIA
     Dosage: 200MG TWICE PER DAY
     Route: 048
     Dates: start: 20010608
  4. ALINAMIN-F [Concomitant]
     Dosage: 25MG TWICE PER DAY
     Route: 048
  5. LOXOPROFEN SODIUM [Concomitant]
     Dosage: 180MG PER DAY
     Route: 048
     Dates: start: 20030819

REACTIONS (4)
  - CYANOSIS [None]
  - DEPRESSED LEVEL OF CONSCIOUSNESS [None]
  - DYSPNOEA [None]
  - RESPIRATORY FAILURE [None]
